FAERS Safety Report 9802915 (Version 1)
Quarter: 2014Q1

REPORT INFORMATION
  Report Type: Spontaneous
  Country: US (occurrence: None)
  Receive Date: 20140106
  Receipt Date: 20140106
  Transmission Date: 20141002
  Serious: Yes (Disabling, Other)
  Sender: FDA-Public Use
  Company Number: None

PATIENT
  Age: 49 Year
  Sex: Female
  Weight: 81.65 kg

DRUGS (1)
  1. LEVAQUIN [Suspect]
     Indication: UPPER RESPIRATORY TRACT INFECTION
     Dosage: 1 TABLET  ONCE DAILY  TAKEN BY MOUTH
     Route: 048
     Dates: start: 20100714, end: 20100724

REACTIONS (3)
  - Tendonitis [None]
  - Tendon rupture [None]
  - Psoriatic arthropathy [None]
